FAERS Safety Report 7216542-X (Version None)
Quarter: 2011Q1

REPORT INFORMATION
  Report Type: 
  Country: None (occurrence: None)
  Receive Date: 20110109
  Receipt Date: 20101230
  Transmission Date: 20110831
  Serious: Yes (Hospitalization)
  Sender: FDA-Public Use
  Company Number: US-BRISTOL-MYERS SQUIBB COMPANY-15475213

PATIENT
  Age: 70 Year
  Sex: Female
  Weight: 65 kg

DRUGS (4)
  1. OXYGEN [Concomitant]
     Dosage: VIA NASAL CANNULA
     Route: 045
  2. CETUXIMAB [Suspect]
     Indication: NON-SMALL CELL LUNG CANCER
     Dosage: INTERRUPTED ON 21DEC2010(56D);RECENT INF:21DEC2010; NO OF INF:8
     Route: 042
     Dates: start: 20101026
  3. PEMETREXED DISODIUM [Suspect]
     Indication: NON-SMALL CELL LUNG CANCER
     Dosage: INTERRUPTED ON 14DEC2010(49D); NO OF INF:3
     Route: 042
     Dates: start: 20101026
  4. CARBOPLATIN [Suspect]
     Indication: NON-SMALL CELL LUNG CANCER
     Dosage: INTERRUPTED ON 14DEC2010(49D); NO OF INF:3
     Route: 042
     Dates: start: 20101026

REACTIONS (1)
  - DYSPNOEA [None]
